FAERS Safety Report 9883356 (Version 2)
Quarter: 2014Q1

REPORT INFORMATION
  Report Type: Spontaneous
  Country: US (occurrence: US)
  Receive Date: 20140210
  Receipt Date: 20140210
  Transmission Date: 20141002
  Serious: Yes (Other)
  Sender: FDA-Public Use
  Company Number: US-BEH-2011029728

PATIENT
  Sex: Male
  Weight: 72 kg

DRUGS (31)
  1. ZEMAIRA [Suspect]
     Dosage: ??-OCT-2008 START DATE
     Route: 042
  2. ZEMAIRA [Suspect]
     Indication: ALPHA-1 ANTI-TRYPSIN DEFICIENCY
     Dosage: 6.1 ML PER MINUTE
     Route: 042
     Dates: start: 20110901
  3. ZEMAIRA [Suspect]
     Route: 042
     Dates: start: 20110901
  4. ZEMAIRA [Suspect]
     Dosage: 1003 MG/VIAL; M,AX RATE 0.08 ML/KG/MIN (5.8 ML/MIN)
     Route: 042
  5. SINGULAIR [Concomitant]
  6. LEVOCETIRIZINE [Concomitant]
  7. PRILOSEC [Concomitant]
  8. SPIRIVA [Concomitant]
  9. LASIX [Concomitant]
  10. FOLIC ACID [Concomitant]
  11. LORAZEPAM [Concomitant]
  12. POTASSIUM CHLORIDE [Concomitant]
  13. MAXAIR [Concomitant]
  14. THEOPHYLLINE [Concomitant]
  15. PULMICORT [Concomitant]
  16. DUONEB [Concomitant]
  17. DIOVAN [Concomitant]
  18. XOPENEX [Concomitant]
  19. ALBUTEROL [Concomitant]
  20. COLACE [Concomitant]
  21. SODIUM CHLORIDE [Concomitant]
  22. OXYGEN [Concomitant]
  23. PREDNISONE [Concomitant]
  24. AZITHROMYCIN [Concomitant]
  25. DIPHENHYDRAMINE [Concomitant]
  26. EPIPEN [Concomitant]
  27. LMX [Concomitant]
  28. ALBUTEROL [Concomitant]
  29. ARCAPTA [Concomitant]
  30. OXYCODONE [Concomitant]
  31. DEXILANT [Concomitant]

REACTIONS (3)
  - Pruritus [Unknown]
  - Hyperhidrosis [Unknown]
  - Dyspnoea [Unknown]
